FAERS Safety Report 12999803 (Version 1)
Quarter: 2016Q4

REPORT INFORMATION
  Report Type: Report from Study
  Country: DE (occurrence: DE)
  Receive Date: 20161205
  Receipt Date: 20161205
  Transmission Date: 20170207
  Serious: Yes (Hospitalization, Other)
  Sender: FDA-Public Use
  Company Number: DE-SEATTLE GENETICS-2016SGN01910

PATIENT

DRUGS (8)
  1. PREDNISONE. [Suspect]
     Active Substance: PREDNISONE
     Indication: HODGKIN^S DISEASE
     Dosage: 100 MG, UNK
     Route: 065
     Dates: start: 20161118, end: 20161122
  2. BRENTUXIMAB VEDOTIN [Suspect]
     Active Substance: BRENTUXIMAB VEDOTIN
     Dosage: 1.8 MG/KG, UNK
     Dates: start: 20161117, end: 20161117
  3. METOPROLOL. [Concomitant]
     Active Substance: METOPROLOL
     Dosage: 150 MG, QD
     Route: 065
     Dates: start: 20161012, end: 20161128
  4. OMEPRAZOL                          /00661201/ [Concomitant]
     Active Substance: OMEPRAZOLE
     Dosage: 20 MG, UNK
     Route: 065
     Dates: start: 20160811, end: 20161128
  5. CYCLOPHOSPHAMIDE. [Suspect]
     Active Substance: CYCLOPHOSPHAMIDE
     Indication: HODGKIN^S DISEASE
     Dosage: 750 MG/M2, UNK
     Route: 065
     Dates: start: 20161117, end: 20161117
  6. ZARZIO [Concomitant]
     Active Substance: FILGRASTIM
     Dosage: UNK, QD
     Route: 065
     Dates: start: 20161120, end: 20161127
  7. PRADAXA [Concomitant]
     Active Substance: DABIGATRAN ETEXILATE MESYLATE
     Dosage: 110 MG, UNK
     Route: 065
     Dates: start: 20161011, end: 20161128
  8. DOXORUBICIN [Suspect]
     Active Substance: DOXORUBICIN
     Indication: HODGKIN^S DISEASE
     Dosage: 50 MG/M2, UNK
     Route: 065
     Dates: start: 20161117, end: 20161117

REACTIONS (1)
  - Pseudomonal sepsis [Not Recovered/Not Resolved]

NARRATIVE: CASE EVENT DATE: 20161125
